FAERS Safety Report 17297236 (Version 2)
Quarter: 2020Q4

REPORT INFORMATION
  Report Type: Other
  Country: CA (occurrence: CA)
  Receive Date: 20200122
  Receipt Date: 20201118
  Transmission Date: 20210113
  Serious: Yes (Other)
  Sender: FDA-Public Use
  Company Number: CA-LUPIN HEALTHCARE (UK) LIMITED-2020-00233

PATIENT
  Age: 1 Year
  Sex: Female

DRUGS (1)
  1. CEPHALEXIN. [Suspect]
     Active Substance: CEPHALEXIN
     Indication: LYMPH GLAND INFECTION
     Dosage: UNK, QID (4 EVERY 1 DAYS)
     Route: 048

REACTIONS (2)
  - Diarrhoea [Unknown]
  - Flatulence [Unknown]
